FAERS Safety Report 9651912 (Version 2)
Quarter: 2014Q1

REPORT INFORMATION
  Report Type: Spontaneous
  Country: US (occurrence: US)
  Receive Date: 20131029
  Receipt Date: 20140127
  Transmission Date: 20141002
  Serious: No
  Sender: FDA-Public Use
  Company Number: US-009507513-1310USA013293

PATIENT
  Age: 61 Year
  Sex: Female
  Weight: 77.55 kg

DRUGS (8)
  1. MIRALAX [Suspect]
     Indication: CONSTIPATION
     Dosage: 17 G, QAM
     Route: 048
     Dates: start: 201002, end: 20131011
  2. MIRALAX [Suspect]
     Dosage: 17 G, QAM
     Route: 048
     Dates: start: 201310
  3. LEVEMIR [Concomitant]
     Indication: DIABETES MELLITUS
     Dosage: UNK, QD
  4. PROTONIX [Concomitant]
     Indication: GASTROOESOPHAGEAL REFLUX DISEASE
     Dosage: 40 MG, QD
  5. PROTONIX [Concomitant]
     Indication: IRRITABLE BOWEL SYNDROME
  6. INDAPAMIDE [Concomitant]
     Indication: FLUID RETENTION
     Dosage: 125 MG, QD
  7. SYNTHROID [Concomitant]
     Indication: HYPOTHYROIDISM
     Dosage: .075 MICROGRAM, UNKNOWN
  8. SALAGEN [Concomitant]
     Indication: DRY MOUTH
     Dosage: 5 MG, QID

REACTIONS (4)
  - Abdominal pain upper [Recovered/Resolved]
  - Muscle spasms [Unknown]
  - Incorrect drug administration duration [Unknown]
  - Off label use [Unknown]
